FAERS Safety Report 9103089 (Version 7)
Quarter: 2013Q2

REPORT INFORMATION
  Report Type: Spontaneous
  Country: US (occurrence: US)
  Receive Date: 20130219
  Receipt Date: 20130508
  Transmission Date: 20140414
  Serious: Yes (Other)
  Sender: FDA-Public Use
  Company Number: US-009507513-1302USA005156

PATIENT
  Age: 45 Year
  Sex: Male
  Weight: 101.59 kg

DRUGS (6)
  1. PEGINTRON [Suspect]
     Indication: HEPATITIS C
     Dosage: REDIPEN
     Route: 058
     Dates: start: 20130205, end: 20130423
  2. REBETOL [Suspect]
     Indication: HEPATITIS C
     Dosage: UNK
     Route: 048
     Dates: start: 20130205, end: 20130423
  3. SEROQUEL [Concomitant]
     Indication: POOR QUALITY SLEEP
  4. RESTORIL (CHLORMEZANONE) [Concomitant]
  5. PAXIL [Concomitant]
     Indication: MOOD SWINGS
  6. FLOMAX (TAMSULOSIN HYDROCHLORIDE) [Concomitant]
     Indication: PROSTATIC DISORDER

REACTIONS (42)
  - Convulsion [Unknown]
  - Musculoskeletal disorder [Unknown]
  - Cough [Unknown]
  - Vomiting [Unknown]
  - Irritability [Unknown]
  - Malaise [Unknown]
  - Skin disorder [Unknown]
  - Rash [Unknown]
  - Pruritus [Unknown]
  - Memory impairment [Unknown]
  - Anger [Unknown]
  - Headache [Unknown]
  - Anxiety [Unknown]
  - Pain [Unknown]
  - Tooth loss [Unknown]
  - Tooth loss [Unknown]
  - Incontinence [Unknown]
  - Insomnia [Unknown]
  - Alopecia [Unknown]
  - Depression [Unknown]
  - Anger [Unknown]
  - Vomiting [Unknown]
  - Weight decreased [Unknown]
  - Irritability [Unknown]
  - Oropharyngeal pain [Unknown]
  - Memory impairment [Unknown]
  - Pruritus [Unknown]
  - Dysgeusia [Unknown]
  - Skin disorder [Unknown]
  - Nausea [Unknown]
  - Hyperhidrosis [Unknown]
  - Skin disorder [Unknown]
  - Headache [Unknown]
  - Dizziness [Unknown]
  - Affective disorder [Unknown]
  - Dizziness [Unknown]
  - Dyspnoea [Unknown]
  - Hypoaesthesia [Unknown]
  - Memory impairment [Unknown]
  - Musculoskeletal disorder [Unknown]
  - Myalgia [Unknown]
  - Injection site reaction [Unknown]
